FAERS Safety Report 17046786 (Version 1)
Quarter: 2019Q4

REPORT INFORMATION
  Report Type: Report from Study
  Country: IT (occurrence: IT)
  Receive Date: 20191119
  Receipt Date: 20191119
  Transmission Date: 20200122
  Serious: Yes (Hospitalization, Other)
  Sender: FDA-Public Use
  Company Number: IT-BRISTOL-MYERS SQUIBB COMPANY-BMS-2019-108583

PATIENT
  Age: 80 Year
  Sex: Male

DRUGS (2)
  1. AMLODIPINA [AMLODIPINE BESILATE] [Concomitant]
     Indication: PRODUCT USED FOR UNKNOWN INDICATION
     Dosage: 10 MILLIGRAM, QD
     Route: 065
  2. NIVOLUMAB [Suspect]
     Active Substance: NIVOLUMAB
     Indication: MALIGNANT MELANOMA
     Dosage: 3 MILLIGRAM/KILOGRAM, Q2WK
     Route: 065

REACTIONS (4)
  - Renal failure [Unknown]
  - Nausea [Unknown]
  - Diabetic ketoacidosis [Unknown]
  - Influenza [Unknown]

NARRATIVE: CASE EVENT DATE: 20191031
